FAERS Safety Report 8427000-9 (Version None)
Quarter: 2012Q2

REPORT INFORMATION
  Report Type: 
  Country: None (occurrence: None)
  Receive Date: 20120611
  Receipt Date: 20120601
  Transmission Date: 20120825
  Serious: Yes (Life-Threatening, Hospitalization)
  Sender: FDA-Public Use
  Company Number: FR-ROCHE-1062958

PATIENT
  Sex: Male

DRUGS (22)
  1. CRESTOR [Concomitant]
  2. PREDNISOLONE [Suspect]
  3. NEO-MERCAZOLE TAB [Concomitant]
  4. AMLODIPINE BESYLATE [Concomitant]
  5. INSULATARD NPH HUMAN [Concomitant]
     Dosage: 14 IU IN MORNING,14 IU AT MID DAY AND 12 IU IN EVENING
  6. LASIX [Concomitant]
  7. ESIDRIX [Concomitant]
  8. NEXIUM [Concomitant]
  9. HEPARIN CALCIUM [Suspect]
     Indication: PRODUCT USED FOR UNKNOWN INDICATION
     Dates: start: 20120405, end: 20120416
  10. BACTRIM DS [Concomitant]
  11. ASPIRIN [Concomitant]
  12. CORDARONE [Concomitant]
  13. VALGANCICLOVIR [Concomitant]
  14. TROSPIUM CHLORIDE [Concomitant]
  15. CYCLOPHOSPHAMIDE [Suspect]
     Indication: TRANSPLANT REJECTION
     Route: 002
     Dates: start: 20120321
  16. CELLCEPT [Suspect]
  17. PREDNISOLONE [Suspect]
     Indication: TRANSPLANT REJECTION
     Route: 002
     Dates: start: 20120327
  18. CELLCEPT [Suspect]
     Indication: TRANSPLANT REJECTION
     Route: 002
     Dates: start: 20120321
  19. CYCLOPHOSPHAMIDE [Suspect]
  20. HEPARIN CALCIUM [Suspect]
  21. NEO-MERCAZOLE TAB [Concomitant]
  22. NEBIVOLOL HCL [Concomitant]

REACTIONS (6)
  - MUSCLE HAEMORRHAGE [None]
  - TRANSFUSION [None]
  - BLOOD CREATININE INCREASED [None]
  - HEPARIN-INDUCED THROMBOCYTOPENIA [None]
  - OVERDOSE [None]
  - ANAEMIA [None]
